FAERS Safety Report 18483820 (Version 4)
Quarter: 2020Q4

REPORT INFORMATION
  Report Type: Report from Study
  Country: US (occurrence: US)
  Receive Date: 20201109
  Receipt Date: 20201224
  Transmission Date: 20210114
  Serious: Yes (Hospitalization, Other)
  Sender: FDA-Public Use
  Company Number: US-EMD SERONO-9150022

PATIENT
  Age: 59 Year
  Sex: Male

DRUGS (10)
  1. ALEVE [Concomitant]
     Active Substance: NAPROXEN SODIUM
     Indication: PREMEDICATION
  2. GABAPENTIN. [Concomitant]
     Active Substance: GABAPENTIN
     Indication: SCIATICA
  3. MORPHINE [Suspect]
     Active Substance: MORPHINE
     Indication: PAIN
     Dosage: THERAPY START DATE- SEP 2020
  4. TYLENOL [Concomitant]
     Active Substance: ACETAMINOPHEN
     Indication: PREMEDICATION
  5. GABAPENTIN. [Concomitant]
     Active Substance: GABAPENTIN
  6. FLONASE                            /00908302/ [Suspect]
     Active Substance: MOMETASONE FUROATE
     Indication: RESPIRATORY TRACT INFECTION
  7. REBIF [Suspect]
     Active Substance: INTERFERON BETA-1A
     Indication: MULTIPLE SCLEROSIS
     Route: 058
     Dates: start: 20130722
  8. REBIF [Suspect]
     Active Substance: INTERFERON BETA-1A
     Route: 058
     Dates: start: 20131126
  9. TYLENOL [Concomitant]
     Active Substance: ACETAMINOPHEN
     Indication: INFLUENZA LIKE ILLNESS
  10. FLONASE                            /00908302/ [Suspect]
     Active Substance: MOMETASONE FUROATE
     Indication: SINUSITIS
     Route: 045

REACTIONS (24)
  - Anosmia [Recovered/Resolved]
  - Anxiety [Unknown]
  - Constipation [Unknown]
  - Dysuria [Unknown]
  - Headache [Unknown]
  - Platelet count decreased [Unknown]
  - Arthralgia [Recovered/Resolved]
  - Injection site induration [Unknown]
  - Sinusitis [Recovered/Resolved]
  - Parosmia [Unknown]
  - Fatigue [Unknown]
  - Respiratory tract infection [Recovered/Resolved]
  - Weight decreased [Recovering/Resolving]
  - Drug interaction [Unknown]
  - Adverse reaction [Unknown]
  - Chills [Unknown]
  - White blood cell count decreased [Unknown]
  - Pulmonary mass [Recovering/Resolving]
  - Psychotic disorder [Unknown]
  - Ageusia [Recovered/Resolved]
  - Weight gain poor [Unknown]
  - Non-small cell lung cancer [Unknown]
  - Decreased appetite [Unknown]
  - Injection site nodule [Unknown]

NARRATIVE: CASE EVENT DATE: 2020
